FAERS Safety Report 8339371-2 (Version None)
Quarter: 2012Q2

REPORT INFORMATION
  Report Type: 
  Country: None (occurrence: None)
  Receive Date: 20120507
  Receipt Date: 20120426
  Transmission Date: 20120825
  Serious: Yes (Other)
  Sender: FDA-Public Use
  Company Number: US-US-EMD SERONO, INC.-7129124

PATIENT
  Sex: Female

DRUGS (3)
  1. REBIF [Suspect]
     Route: 058
     Dates: start: 20120101
  2. REBIF [Suspect]
     Indication: MULTIPLE SCLEROSIS
     Route: 058
     Dates: start: 20110426, end: 20111201
  3. NAPROXEN (ALEVE) [Concomitant]
     Indication: BACK PAIN
     Dates: start: 19950101

REACTIONS (9)
  - URINARY TRACT INFECTION [None]
  - INJECTION SITE HAEMATOMA [None]
  - HEPATIC ENZYME INCREASED [None]
  - INJECTION SITE PAIN [None]
  - INJECTION SITE ERYTHEMA [None]
  - KIDNEY INFECTION [None]
  - COUGH [None]
  - THROAT IRRITATION [None]
  - MULTIPLE SCLEROSIS RELAPSE [None]
